FAERS Safety Report 13519089 (Version 1)
Quarter: 2017Q2

REPORT INFORMATION
  Report Type: Report from Study
  Country: ES (occurrence: ES)
  Receive Date: 20170505
  Receipt Date: 20170505
  Transmission Date: 20170830
  Serious: Yes (Other)
  Sender: FDA-Public Use
  Company Number: ES-SA-2017SA078201

PATIENT
  Age: 50 Year
  Sex: Female

DRUGS (4)
  1. OMEPRAZOLE. [Concomitant]
     Active Substance: OMEPRAZOLE
     Dosage: 1 CP
     Route: 048
     Dates: start: 20161208
  2. PARACETAMOL [Concomitant]
     Active Substance: ACETAMINOPHEN
     Dosage: 1GR/8H
     Route: 042
     Dates: start: 20161208
  3. LEVOTIROXINA [Concomitant]
     Active Substance: LEVOTHYROXINE SODIUM
     Dosage: 75 MCG
     Route: 048
     Dates: start: 20090101
  4. CLEXANE [Suspect]
     Active Substance: ENOXAPARIN SODIUM
     Indication: DEEP VEIN THROMBOSIS
     Dosage: 60MG/12H
     Route: 058
     Dates: start: 20161208, end: 20161216

REACTIONS (1)
  - Hepatitis [Recovered/Resolved]

NARRATIVE: CASE EVENT DATE: 20161214
